FAERS Safety Report 8992649 (Version 3)
Quarter: 2013Q1

REPORT INFORMATION
  Report Type: Spontaneous
  Country: BR (occurrence: BR)
  Receive Date: 20130101
  Receipt Date: 20130110
  Transmission Date: 20140127
  Serious: Yes (Other)
  Sender: FDA-Public Use
  Company Number: PHHY2012BR119274

PATIENT
  Sex: Female
  Weight: 69 kg

DRUGS (7)
  1. EXJADE [Suspect]
     Indication: SICKLE CELL ANAEMIA
     Dosage: 1250 MG, UNK
  2. EXJADE [Suspect]
     Dosage: 500 MG, UNK
  3. FOLIC ACID [Concomitant]
     Dosage: THREE TIMES A WEEK
     Dates: start: 1977
  4. DIPIRONE [Concomitant]
     Indication: PAIN
     Dosage: UNK UKN, UNK
     Dates: start: 1977
  5. IBUPROFEN [Concomitant]
     Dosage: UNK UKN, UNK
     Dates: start: 2005
  6. FORADIL [Concomitant]
     Dosage: UNK UKN, UNK
  7. BUDESONIDE [Concomitant]
     Dosage: UNK UKN, UNK

REACTIONS (3)
  - Memory impairment [Unknown]
  - Hearing impaired [Unknown]
  - Serum ferritin increased [Unknown]
